FAERS Safety Report 16207464 (Version 2)
Quarter: 2019Q2

REPORT INFORMATION
  Report Type: Spontaneous
  Country: US (occurrence: US)
  Receive Date: 20190417
  Receipt Date: 20190426
  Transmission Date: 20190711
  Serious: No
  Sender: FDA-Public Use
  Company Number: US-PFIZER INC-2019159836

PATIENT
  Age: 52 Year
  Sex: Female
  Weight: 106.5 kg

DRUGS (2)
  1. ESTRING [Suspect]
     Active Substance: ESTRADIOL
     Indication: HORMONE REPLACEMENT THERAPY
  2. ESTRING [Suspect]
     Active Substance: ESTRADIOL
     Indication: HOT FLUSH
     Dosage: EVERY 90 DAYS (ESTRING IS TAKEN OUT EVERY 90 DAYS AND A NEW ONE IS INSERTED)
     Dates: start: 20190327

REACTIONS (3)
  - Abdominal pain [Not Recovered/Not Resolved]
  - Haemorrhoids [Recovering/Resolving]
  - Weight increased [Unknown]

NARRATIVE: CASE EVENT DATE: 20190408
